FAERS Safety Report 20218342 (Version 1)
Quarter: 2021Q4

REPORT INFORMATION
  Report Type: Spontaneous
  Country: CN (occurrence: None)
  Receive Date: 20211222
  Receipt Date: 20211222
  Transmission Date: 20220303
  Serious: Yes (Other)
  Sender: FDA-Public Use
  Company Number: 2021A882329

PATIENT
  Age: 84 Year
  Sex: Female
  Weight: 44 kg

DRUGS (5)
  1. DAPAGLIFLOZIN [Suspect]
     Active Substance: DAPAGLIFLOZIN
     Indication: Blood glucose decreased
     Route: 048
     Dates: start: 20211107, end: 20211109
  2. ACARBOSE [Concomitant]
     Active Substance: ACARBOSE
     Indication: Carbohydrate intolerance
  3. CEFTAZIDIME [Concomitant]
     Active Substance: CEFTAZIDIME
  4. METFORMIN [Concomitant]
     Active Substance: METFORMIN HYDROCHLORIDE
  5. REPAGLINIDE [Concomitant]
     Active Substance: REPAGLINIDE

REACTIONS (5)
  - Pollakiuria [Recovering/Resolving]
  - White blood cells urine positive [Recovering/Resolving]
  - Micturition urgency [Recovering/Resolving]
  - Dysuria [Recovering/Resolving]
  - Urinary tract infection [Unknown]

NARRATIVE: CASE EVENT DATE: 20211110
